FAERS Safety Report 8297518 (Version 5)
Quarter: 2022Q2

REPORT INFORMATION
  Report Type: Spontaneous
  Country: FR (occurrence: FR)
  Receive Date: 20111218
  Receipt Date: 20220602
  Transmission Date: 20220721
  Serious: Yes (Hospitalization, Other)
  Sender: FDA-Public Use
  Company Number: FR-ELI_LILLY_AND_COMPANY-FR201112001250

PATIENT
  Age: 30 Year
  Sex: Male

DRUGS (9)
  1. ZYPREXA [Interacting]
     Active Substance: OLANZAPINE
     Indication: Psychotic disorder
     Dosage: 10 MG, QD
     Route: 048
     Dates: start: 20110727, end: 20110825
  2. CLAFORAN [Concomitant]
     Active Substance: CEFOTAXIME SODIUM
     Indication: Antibiotic therapy
     Dosage: 4 G, TID
     Route: 042
     Dates: start: 20110725, end: 20110802
  3. CLAFORAN [Concomitant]
     Active Substance: CEFOTAXIME SODIUM
     Dosage: 4 G, TID
     Route: 042
     Dates: start: 20110822, end: 20110825
  4. FOSFOMYCIN [Suspect]
     Active Substance: FOSFOMYCIN
     Indication: Antibiotic therapy
     Dosage: 4 G, TID
     Route: 042
     Dates: start: 20110725, end: 20110802
  5. RIFAMPIN SODIUM [Suspect]
     Active Substance: RIFAMPIN SODIUM
     Indication: Antibiotic therapy
     Dosage: 600 MG, BID
     Route: 042
     Dates: start: 20110802, end: 20110822
  6. PIPERACILLIN SODIUM [Suspect]
     Active Substance: PIPERACILLIN SODIUM
     Indication: Antibiotic therapy
     Dosage: 4 G, TID
     Route: 042
     Dates: start: 20110802, end: 20110822
  7. CARBAMAZEPINE [Interacting]
     Active Substance: CARBAMAZEPINE
     Indication: Product used for unknown indication
     Route: 065
  8. IOBITRIDOL [Suspect]
     Active Substance: IOBITRIDOL
     Indication: Product used for unknown indication
  9. CYAMEMAZINE [Suspect]
     Active Substance: CYAMEMAZINE
     Indication: Psychotic disorder
     Route: 065

REACTIONS (3)
  - Drug reaction with eosinophilia and systemic symptoms [Recovered/Resolved]
  - Hypersensitivity [Unknown]
  - Drug interaction [Recovered/Resolved]

NARRATIVE: CASE EVENT DATE: 20110824
